FAERS Safety Report 9183470 (Version 1)
Quarter: 2012Q4

REPORT INFORMATION
  Report Type: 
  Country: US (occurrence: US)
  Receive Date: 20121101
  Receipt Date: 20121101
  Transmission Date: 20130627
  Serious: No
  Sender: FDA-Public Use
  Company Number: US-PFIZER INC-2012270083

PATIENT
  Age: 50 Year
  Sex: Female

DRUGS (2)
  1. GEODON [Suspect]
     Indication: DRUG USE FOR UNKNOWN INDICATION
     Dosage: UNK
  2. LATUDA [Suspect]
     Indication: DRUG USE FOR UNKNOWN INDICATION
     Dosage: 40 mg, 1x/day
     Route: 048

REACTIONS (2)
  - Increased appetite [Unknown]
  - Insomnia [Unknown]
